FAERS Safety Report 7914901-0 (Version None)
Quarter: 2011Q4

REPORT INFORMATION
  Report Type: 
  Country: None (occurrence: None)
  Receive Date: 20111115
  Receipt Date: 20111107
  Transmission Date: 20120403
  Serious: Yes (Other)
  Sender: FDA-Public Use
  Company Number: US-ROCHE-1011616

PATIENT

DRUGS (2)
  1. HERCEPTIN [Suspect]
     Indication: BREAST CANCER
  2. VINORELBINE TARTRATE [Suspect]
     Indication: PRODUCT USED FOR UNKNOWN INDICATION

REACTIONS (1)
  - NERVOUS SYSTEM DISORDER [None]
